FAERS Safety Report 20172626 (Version 1)
Quarter: 2021Q4

REPORT INFORMATION
  Report Type: Report from Study
  Country: US (occurrence: US)
  Receive Date: 20211211
  Receipt Date: 20211211
  Transmission Date: 20220303
  Serious: Yes (Hospitalization, Other)
  Sender: FDA-Public Use
  Company Number: US-ABBVIE-21K-163-4193164-00

PATIENT
  Sex: Female

DRUGS (1)
  1. HUMIRA [Suspect]
     Active Substance: ADALIMUMAB
     Indication: Product used for unknown indication
     Route: 058

REACTIONS (9)
  - Hip arthroplasty [Unknown]
  - Shoulder arthroplasty [Unknown]
  - Systemic lupus erythematosus [Unknown]
  - Osteonecrosis [Unknown]
  - Cerebrovascular accident [Unknown]
  - Pneumonia [Unknown]
  - Visual impairment [Unknown]
  - Rheumatoid arthritis [Unknown]
  - Memory impairment [Unknown]

NARRATIVE: CASE EVENT DATE: 19960101
